FAERS Safety Report 12538651 (Version 1)
Quarter: 2016Q3

REPORT INFORMATION
  Report Type: Report from Study
  Country: HU (occurrence: HU)
  Receive Date: 20160708
  Receipt Date: 20160708
  Transmission Date: 20161109
  Serious: Yes (Hospitalization)
  Sender: FDA-Public Use
  Company Number: HU-ABBVIE-16K-076-1666814-00

PATIENT
  Age: 59 Year
  Sex: Male

DRUGS (13)
  1. RIVOTRIL [Concomitant]
     Active Substance: CLONAZEPAM
     Indication: ANXIETY
     Route: 048
     Dates: start: 2012
  2. OLICARD [Concomitant]
     Indication: ARTERIOSCLEROSIS CORONARY ARTERY
     Route: 048
     Dates: start: 1996
  3. DOMPERIDONE [Concomitant]
     Active Substance: DOMPERIDONE
     Indication: MALABSORPTION
  4. STALEVO [Concomitant]
     Active Substance: CARBIDOPA\ENTACAPONE\LEVODOPA
     Indication: PARKINSON^S DISEASE
     Dosage: 150 MG/37,5 MG/200 MG; 1 OR 2 TABLETS AT NIGHT
     Route: 048
  5. BISOPROLOL [Concomitant]
     Active Substance: BISOPROLOL
     Indication: HYPERTONIA
     Route: 048
     Dates: start: 2012
  6. PANTOPRAZOLE [Concomitant]
     Active Substance: PANTOPRAZOLE SODIUM
     Indication: GASTRIC DISORDER
     Route: 048
     Dates: start: 2011
  7. PANTOPRAZOLE [Concomitant]
     Active Substance: PANTOPRAZOLE SODIUM
     Indication: PROPHYLAXIS
  8. TORVATEC [Concomitant]
     Indication: HYPERCHOLESTEROLAEMIA
     Dosage: 1 TABLET IN THE EVENING
     Route: 048
     Dates: start: 2013
  9. DOMPERIDONE [Concomitant]
     Active Substance: DOMPERIDONE
     Indication: NAUSEA
     Route: 048
     Dates: start: 201304
  10. AMILOZID [Concomitant]
     Indication: OEDEMA PERIPHERAL
     Dosage: 50 MG/5 MG
     Route: 048
     Dates: start: 2014
  11. DUODOPA [Suspect]
     Active Substance: CARBIDOPA\LEVODOPA
     Indication: PARKINSON^S DISEASE
     Dosage: MD: 8.0ML; CD: 3.8ML/H; ED: 3.5ML
     Route: 050
     Dates: start: 20120327
  12. MAGNESIUM CITRATE. [Concomitant]
     Active Substance: MAGNESIUM CITRATE
     Indication: NAUSEA
     Route: 048
     Dates: start: 201603
  13. MIDERIZONE [Concomitant]
     Indication: MUSCLE SPASMS
     Route: 048
     Dates: start: 2013

REACTIONS (1)
  - General physical health deterioration [Not Recovered/Not Resolved]

NARRATIVE: CASE EVENT DATE: 20160528
